FAERS Safety Report 9684735 (Version 2)
Quarter: 2013Q4

REPORT INFORMATION
  Report Type: Report from Study
  Country: US (occurrence: US)
  Receive Date: 20131112
  Receipt Date: 20131209
  Transmission Date: 20140711
  Serious: Yes (Death)
  Sender: FDA-Public Use
  Company Number: US-ROCHE-1297207

PATIENT
  Sex: Male

DRUGS (4)
  1. AVASTIN [Suspect]
     Indication: BILE DUCT CANCER
     Dosage: HE RECEIVED ANOTHER DOSE OF BEVACIZUMAB 477 MG IN SODIUM CHLORIDE 0.9 % 100 ML (IVBP) TWICE IN DAY O
     Route: 041
     Dates: start: 20101011
  2. AVASTIN [Suspect]
     Dosage: HE RECEIVED ANOTHER DOSE OF BEVACIZUMAB 508 MG IN SODIUM CHLORIDE 0.9 % 100 ML (IVBP) TWICE IN DAY O
     Route: 041
     Dates: start: 20101213
  3. AVASTIN [Suspect]
     Dosage: HE RECEIVED ANOTHER DOSE OF BEVACIZUMAB 538 MG IN SODIUM CHLORIDE 0.9 % 100 ML (IVBP) TWICE IN DAY O
     Route: 041
     Dates: start: 20110801
  4. SODIUM CHLORIDE 0.9% FLUSH [Concomitant]
     Dosage: IN 100 ML, IVBP
     Route: 042
     Dates: start: 20110801

REACTIONS (1)
  - Disease progression [Fatal]
